FAERS Safety Report 6357598-6 (Version None)
Quarter: 2009Q3

REPORT INFORMATION
  Report Type: 
  Country: None (occurrence: None)
  Receive Date: 20090916
  Receipt Date: 20090910
  Transmission Date: 20100115
  Serious: Yes (Death, Other)
  Sender: FDA-Public Use
  Company Number: PHHY2009MX37215

PATIENT
  Age: 64 Year
  Sex: Male

DRUGS (1)
  1. DIOVAN [Suspect]
     Indication: HYPERTENSION
     Dosage: 2 DF (160 MG)/ DAY
     Route: 048
     Dates: start: 20080801

REACTIONS (11)
  - ANAEMIA [None]
  - CARDIO-RESPIRATORY ARREST [None]
  - DIABETIC FOOT [None]
  - DIABETIC GASTROPATHY [None]
  - HAEMODIALYSIS [None]
  - HYPERTENSION [None]
  - ILEUS PARALYTIC [None]
  - LEG AMPUTATION [None]
  - MULTI-ORGAN FAILURE [None]
  - MYOCARDIAL INFARCTION [None]
  - RENAL DISORDER [None]
